FAERS Safety Report 14477441 (Version 1)
Quarter: 2018Q1

REPORT INFORMATION
  Report Type: Spontaneous
  Country: FR (occurrence: FR)
  Receive Date: 20180201
  Receipt Date: 20180201
  Transmission Date: 20180509
  Serious: No
  Sender: FDA-Public Use
  Company Number: FR-EXELIXIS-CABO-17010494

PATIENT
  Sex: Male

DRUGS (2)
  1. MORPHINE [Concomitant]
     Active Substance: MORPHINE
  2. CABOMETYX [Suspect]
     Active Substance: CABOZANTINIB S-MALATE
     Indication: MEDULLARY THYROID CANCER
     Dosage: 40 MG, QD
     Route: 048

REACTIONS (4)
  - Cholestasis [Unknown]
  - Transaminases increased [Unknown]
  - Cell death [Unknown]
  - Off label use [Unknown]
